FAERS Safety Report 25970566 (Version 1)
Quarter: 2025Q4

REPORT INFORMATION
  Report Type: Spontaneous
  Country: JP (occurrence: JP)
  Receive Date: 20251028
  Receipt Date: 20251028
  Transmission Date: 20260117
  Serious: Yes (Other)
  Sender: AMGEN
  Company Number: JP-AMGEN-JPNSP2025209747

PATIENT

DRUGS (5)
  1. BEVACIZUMAB [Suspect]
     Active Substance: BEVACIZUMAB
     Indication: Non-small cell lung cancer
     Dosage: 15 MILLIGRAM/KILOGRAM, Q3WK (EVERY 21 DAYS)
     Route: 065
  2. PEGFILGRASTIM [Suspect]
     Active Substance: PEGFILGRASTIM
     Indication: Product used for unknown indication
     Dosage: UNK
     Route: 065
  3. ATEZOLIZUMAB [Suspect]
     Active Substance: ATEZOLIZUMAB
     Indication: Non-small cell lung cancer
     Dosage: 1200 MILLIGRAM, Q3WK
     Route: 065
  4. CARBOPLATIN [Suspect]
     Active Substance: CARBOPLATIN
     Indication: Non-small cell lung cancer
     Dosage: AREA UNDER THE CONCENTRATION-TIME CURVE OF 6 MG/ML/MIN
     Route: 065
  5. PACLITAXEL [Suspect]
     Active Substance: PACLITAXEL
     Indication: Non-small cell lung cancer
     Dosage: 200 MILLIGRAM/SQ. METER, Q3WK
     Route: 065

REACTIONS (25)
  - Neutropenia [Unknown]
  - Pneumonitis [Unknown]
  - Febrile neutropenia [Unknown]
  - Thrombocytopenia [Unknown]
  - Nephritis [Unknown]
  - Gastrointestinal perforation [Unknown]
  - Bronchial fistula [Unknown]
  - Non-small cell lung cancer [Unknown]
  - Pneumothorax [Unknown]
  - Myasthenia gravis [Unknown]
  - Adrenal insufficiency [Unknown]
  - Hypothyroidism [Unknown]
  - Neuropathy peripheral [Unknown]
  - Leukopenia [Unknown]
  - Proteinuria [Unknown]
  - Decreased appetite [Unknown]
  - Myositis [Unknown]
  - Hepatic function abnormal [Unknown]
  - Dermatitis [Unknown]
  - Nausea [Unknown]
  - Toxicity to various agents [Unknown]
  - Fatigue [Unknown]
  - Rash [Unknown]
  - Anaemia [Unknown]
  - Therapy partial responder [Unknown]
